FAERS Safety Report 9115787 (Version 4)
Quarter: 2014Q2

REPORT INFORMATION
  Report Type: Report from Study
  Country: DE (occurrence: DE)
  Receive Date: 20130224
  Receipt Date: 20140630
  Transmission Date: 20141212
  Serious: No
  Sender: FDA-Public Use
  Company Number: PHHY2012DE121391

PATIENT
  Sex: Female

DRUGS (5)
  1. AMN107 [Suspect]
     Indication: CHRONIC MYELOID LEUKAEMIA
     Dosage: 600 MG, QD
     Route: 048
     Dates: start: 20120830
  2. JODTHYROX [Concomitant]
     Dosage: 100 MG,
     Route: 048
  3. BISOPROLOL [Concomitant]
     Dosage: 10 MG,
  4. RAMIPRIL [Concomitant]
     Dosage: 5 MG,
  5. PANTOZOL [Concomitant]
     Dosage: 40 MG,

REACTIONS (4)
  - Pruritus [Not Recovered/Not Resolved]
  - Hypersensitivity [Not Recovered/Not Resolved]
  - Rash pruritic [Not Recovered/Not Resolved]
  - Swelling [Recovered/Resolved]
